FAERS Safety Report 5270999-2 (Version None)
Quarter: 2007Q1

REPORT INFORMATION
  Report Type: 
  Country: None (occurrence: None)
  Receive Date: 20070321
  Receipt Date: 20070320
  Transmission Date: 20070707
  Serious: Yes (Hospitalization, Other)
  Sender: FDA-Public Use
  Company Number: US-BRISTOL-MYERS SQUIBB COMPANY-13647391

PATIENT
  Age: 81 Year
  Sex: Female
  Weight: 51 kg

DRUGS (1)
  1. MITOMYCIN [Suspect]
     Indication: BLADDER TRANSITIONAL CELL CARCINOMA
     Route: 043
     Dates: start: 20051226

REACTIONS (2)
  - BLADDER PERFORATION [None]
  - INFECTION [None]
